FAERS Safety Report 7334113-1 (Version None)
Quarter: 2011Q1

REPORT INFORMATION
  Report Type: 
  Country: None (occurrence: None)
  Receive Date: 20110307
  Receipt Date: 20110221
  Transmission Date: 20110831
  Serious: Yes (Other)
  Sender: FDA-Public Use
  Company Number: AU-RANBAXY-2011R3-41945

PATIENT

DRUGS (1)
  1. CIFRAN [Suspect]
     Indication: PRODUCT USED FOR UNKNOWN INDICATION
     Dosage: UNK
     Route: 065

REACTIONS (9)
  - SENSORY LOSS [None]
  - ORAL CANDIDIASIS [None]
  - DIZZINESS [None]
  - CONSTIPATION [None]
  - CHEST PAIN [None]
  - VOMITING [None]
  - ABDOMINAL PAIN [None]
  - TENDON PAIN [None]
  - GAIT DISTURBANCE [None]
